FAERS Safety Report 5005964-3 (Version None)
Quarter: 2006Q1

REPORT INFORMATION
  Report Type: 
  Country: None (occurrence: None)
  Receive Date: 20060320
  Receipt Date: 20050201
  Transmission Date: 20060701
  Serious: Yes (Other)
  Sender: FDA-Public Use
  Company Number: 2005-02-0137

PATIENT
  Sex: Female

DRUGS (7)
  1. PEG-INTRON [Suspect]
     Indication: HEPATITIS C
     Dates: start: 20041015, end: 20041210
  2. RIBAVIRIN [Suspect]
     Indication: HEPATITIS C
     Dosage: ORAL
     Route: 048
  3. PROCRIT [Suspect]
     Indication: ANAEMIA
     Dosage: 40,000 IU QWK SUBCUTANEO
     Route: 058
     Dates: start: 20041015, end: 20041219
  4. ARANESP [Suspect]
     Indication: ANAEMIA
  5. LAMIVUDINE [Suspect]
  6. PROGRAF [Suspect]
  7. CELLCEPT [Concomitant]

REACTIONS (4)
  - APLASIA PURE RED CELL [None]
  - BONE MARROW TOXICITY [None]
  - HAEMOGLOBIN DECREASED [None]
  - RETICULOCYTE COUNT DECREASED [None]
